FAERS Safety Report 18426189 (Version 1)
Quarter: 2020Q4

REPORT INFORMATION
  Report Type: Spontaneous
  Country: US (occurrence: US)
  Receive Date: 20201026
  Receipt Date: 20201026
  Transmission Date: 20210114
  Serious: Yes (Other)
  Sender: FDA-Public Use
  Company Number: US-ELI_LILLY_AND_COMPANY-US202010005939

PATIENT
  Sex: Female

DRUGS (1)
  1. TALTZ [Suspect]
     Active Substance: IXEKIZUMAB
     Indication: AXIAL SPONDYLOARTHRITIS
     Dosage: 80 MG, SINGLE
     Route: 065
     Dates: start: 20201013, end: 20201013

REACTIONS (4)
  - Magnetic resonance imaging abnormal [Unknown]
  - Therapy non-responder [Recovered/Resolved]
  - Physical deconditioning [Unknown]
  - Systemic lupus erythematosus [Unknown]

NARRATIVE: CASE EVENT DATE: 20201013
